FAERS Safety Report 6403339-3 (Version None)
Quarter: 2009Q4

REPORT INFORMATION
  Report Type: 
  Country: None (occurrence: None)
  Receive Date: 20091016
  Receipt Date: 20091007
  Transmission Date: 20100525
  Serious: Yes (Hospitalization)
  Sender: FDA-Public Use
  Company Number: US-ASTRAZENECA-2009SE18528

PATIENT
  Age: 64 Year
  Sex: Male
  Weight: 95.3 kg

DRUGS (4)
  1. NEXIUM [Suspect]
     Indication: GASTROOESOPHAGEAL REFLUX DISEASE
     Dates: start: 20010101, end: 20090901
  2. PRILOSEC [Suspect]
     Indication: GASTROOESOPHAGEAL REFLUX DISEASE
  3. PLAVIX [Concomitant]
  4. TUMS [Concomitant]

REACTIONS (2)
  - DYSPEPSIA [None]
  - MYOCARDIAL INFARCTION [None]
